FAERS Safety Report 7585500-8 (Version None)
Quarter: 2011Q2

REPORT INFORMATION
  Report Type: 
  Country: None (occurrence: None)
  Receive Date: 20110624
  Receipt Date: 20110610
  Transmission Date: 20111010
  Serious: Yes (Hospitalization)
  Sender: FDA-Public Use
  Company Number: CIO11011067

PATIENT
  Sex: Female

DRUGS (1)
  1. METAMUCIL CAPSULES, VERSION UNKNOWN (PSYLLIUM HYDROPHILIC MUCILLOID 3- [Suspect]
     Dosage: ORAL
     Route: 048
     Dates: start: 20101101, end: 20110213

REACTIONS (4)
  - DYSPNOEA [None]
  - CHEST PAIN [None]
  - BLOOD PRESSURE INCREASED [None]
  - VOMITING [None]
